FAERS Safety Report 5229613-4 (Version None)
Quarter: 2007Q1

REPORT INFORMATION
  Report Type: 
  Country: None (occurrence: None)
  Receive Date: 20070201
  Receipt Date: 20070120
  Transmission Date: 20070707
  Serious: Yes (Death, Other)
  Sender: FDA-Public Use
  Company Number: T200500001

PATIENT
  Age: 14 Year
  Sex: Male

DRUGS (1)
  1. PHOSPHOCOL P32 [Suspect]
     Indication: RADIOTHERAPY
     Dosage: 0.5 AND 1 MCI, ONCE
     Dates: start: 20040101, end: 20040101

REACTIONS (3)
  - DISEASE PROGRESSION [None]
  - MEDIASTINAL MASS [None]
  - T-CELL TYPE ACUTE LEUKAEMIA [None]
